FAERS Safety Report 9635946 (Version 1)
Quarter: 2013Q4

REPORT INFORMATION
  Report Type: Spontaneous
  Country: DE (occurrence: DE)
  Receive Date: 20131021
  Receipt Date: 20131021
  Transmission Date: 20140711
  Serious: Yes (Other)
  Sender: FDA-Public Use
  Company Number: GXKR2013DE003316

PATIENT
  Age: 75 Year
  Sex: Female

DRUGS (2)
  1. PRAVASTATIN 1A PHARMA [Suspect]
     Indication: HYPERCHOLESTEROLAEMIA
     Dosage: 40 MG, QD
     Route: 048
     Dates: end: 20131015
  2. PRAVASTATIN 1A PHARMA [Suspect]
     Indication: ARTERIAL OCCLUSIVE DISEASE

REACTIONS (2)
  - Blood creatine phosphokinase MB [Unknown]
  - Blood creatine phosphokinase increased [Unknown]
